FAERS Safety Report 8001595-1 (Version None)
Quarter: 2011Q4

REPORT INFORMATION
  Report Type: 
  Country: None (occurrence: None)
  Receive Date: 20111222
  Receipt Date: 20111213
  Transmission Date: 20120403
  Serious: Yes (Hospitalization)
  Sender: FDA-Public Use
  Company Number: ES-JNJFOC-20111205986

PATIENT
  Age: 79 Year
  Sex: Male

DRUGS (6)
  1. KETOCONAZOLE [Suspect]
     Indication: PROPHYLAXIS
     Route: 048
     Dates: start: 20110709, end: 20110721
  2. HIDROALTESONA [Concomitant]
     Indication: ADRENAL INSUFFICIENCY
     Route: 048
     Dates: start: 20110621
  3. ZOLADEX [Concomitant]
     Indication: HYPERCALCAEMIA
     Route: 051
     Dates: start: 20110520
  4. ARICEPT [Concomitant]
     Indication: DEMENTIA
     Route: 065
     Dates: start: 20110713
  5. RISPERIDONE [Concomitant]
     Indication: DEMENTIA
     Route: 048
     Dates: start: 20110704
  6. OMEPRAZOLE [Concomitant]
     Indication: PROPHYLAXIS
     Route: 048
     Dates: start: 20110709

REACTIONS (4)
  - GENERAL PHYSICAL HEALTH DETERIORATION [None]
  - PANCYTOPENIA [None]
  - HYPOTENSION [None]
  - LOSS OF CONSCIOUSNESS [None]
